FAERS Safety Report 9795795 (Version 1)
Quarter: 2014Q1

REPORT INFORMATION
  Report Type: Spontaneous
  Country: IT (occurrence: IT)
  Receive Date: 20140103
  Receipt Date: 20140103
  Transmission Date: 20141002
  Serious: Yes (Hospitalization)
  Sender: FDA-Public Use
  Company Number: IT-BAYER-2013-158589

PATIENT
  Age: 44 Year
  Sex: Female

DRUGS (8)
  1. CIPROXIN [Suspect]
     Indication: URINARY TRACT INFECTION
     Dosage: UNK
     Route: 048
     Dates: start: 20131101, end: 20131107
  2. TACHIPIRINA [Suspect]
     Indication: INFLUENZA
     Dosage: UNK
     Route: 048
     Dates: start: 20131116, end: 20131116
  3. RINOFLUMUCIL ` [Suspect]
     Indication: INFLUENZA
     Dosage: UNK
     Route: 045
     Dates: start: 20131116, end: 20131116
  4. BISOPROLOL [Concomitant]
     Dosage: 2.5 MG, DAILY DOSE
  5. SIMVASTATIN [Concomitant]
     Dosage: 10 MG, DAILY DOSE
  6. ESOMEPRAZOLE [Concomitant]
     Dosage: 40 MG, DAILY DOSE
  7. EUTIROX [Concomitant]
     Dosage: 1 DF, DAILY DOSE
  8. XANAX [Concomitant]
     Dosage: 1 DF, DAILY DOSE

REACTIONS (4)
  - Erythema [Recovered/Resolved]
  - Lip oedema [Recovered/Resolved]
  - Throat tightness [Recovered/Resolved]
  - Adverse drug reaction [Recovered/Resolved]
